FAERS Safety Report 15481968 (Version 1)
Quarter: 2018Q4

REPORT INFORMATION
  Report Type: Spontaneous
  Country: HR (occurrence: HR)
  Receive Date: 20181010
  Receipt Date: 20181010
  Transmission Date: 20190205
  Serious: Yes (Hospitalization)
  Sender: FDA-Public Use
  Company Number: HR-BAYER-2018-185480

PATIENT
  Age: 73 Year
  Sex: Male
  Weight: 99 kg

DRUGS (6)
  1. INSULIN [INSULIN] [Concomitant]
     Active Substance: INSULIN NOS
     Dosage: UNK
  2. BISOPROLOL [Concomitant]
     Active Substance: BISOPROLOL
     Dosage: UNK
  3. PERINDOPRIL ARG/AMLODIPINE FISHER [Concomitant]
  4. SIMVASTATIN. [Concomitant]
     Active Substance: SIMVASTATIN
     Dosage: 100 MG, UNK
  5. ASPIRIN PROTECT 100 MG [Suspect]
     Active Substance: ASPIRIN
     Dosage: UNK
     Dates: end: 201711
  6. INDAPAMIDE. [Concomitant]
     Active Substance: INDAPAMIDE

REACTIONS (4)
  - Atrial fibrillation [None]
  - Glomerular filtration rate decreased [None]
  - Blood creatinine increased [None]
  - Dyspnoea exertional [None]

NARRATIVE: CASE EVENT DATE: 201711
